FAERS Safety Report 6618645-7 (Version None)
Quarter: 2010Q1

REPORT INFORMATION
  Report Type: 
  Country: None (occurrence: None)
  Receive Date: 20100305
  Receipt Date: 20100305
  Transmission Date: 20100710
  Serious: No
  Sender: FDA-Public Use
  Company Number: None

PATIENT
  Sex: Female
  Weight: 57.1532 kg

DRUGS (3)
  1. LUMIGAN [Suspect]
     Indication: GLAUCOMA
     Dosage: 1 DROP EACH EYE MORNING/NIGHT MANY YEARS
     Route: 047
  2. TEARS [Suspect]
  3. LATISSE [Suspect]

REACTIONS (6)
  - DRY EYE [None]
  - EYE PAIN [None]
  - HAIR COLOUR CHANGES [None]
  - HAIR TEXTURE ABNORMAL [None]
  - MADAROSIS [None]
  - NO THERAPEUTIC RESPONSE [None]
